FAERS Safety Report 19745261 (Version 1)
Quarter: 2021Q3

REPORT INFORMATION
  Report Type: Spontaneous
  Country: SE (occurrence: SE)
  Receive Date: 20210825
  Receipt Date: 20210825
  Transmission Date: 20211014
  Serious: Yes (Life-Threatening, Hospitalization)
  Sender: FDA-Public Use
  Company Number: SE-BAYER-2021-197786

PATIENT
  Sex: Female

DRUGS (1)
  1. LEVONORGESTREL IUS [UNKNOWN] [Suspect]
     Active Substance: LEVONORGESTREL
     Dosage: UNK UNK, CONT
     Route: 015

REACTIONS (5)
  - Ectopic pregnancy with contraceptive device [None]
  - Circulatory collapse [None]
  - Drug ineffective [None]
  - Intra-abdominal haemorrhage [None]
  - Abdominal pain [None]

NARRATIVE: CASE EVENT DATE: 202108
